FAERS Safety Report 9170331 (Version 1)
Quarter: 2013Q1

REPORT INFORMATION
  Report Type: Spontaneous
  Country: US (occurrence: US)
  Receive Date: 20130319
  Receipt Date: 20130319
  Transmission Date: 20140127
  Serious: Yes (Other)
  Sender: FDA-Public Use
  Company Number: US-JNJFOC-20130306125

PATIENT
  Sex: Female
  Weight: 58.06 kg

DRUGS (10)
  1. XARELTO [Suspect]
     Indication: CEREBROVASCULAR ACCIDENT PROPHYLAXIS
     Route: 048
  2. XARELTO [Suspect]
     Indication: ATRIAL FIBRILLATION
     Route: 048
  3. BYSTOLIC [Concomitant]
     Indication: HYPERTENSION
     Dosage: DOSE WAS 2.5 (UNIT UNSPECIFIED)
     Route: 048
     Dates: start: 2013
  4. BYSTOLIC [Concomitant]
     Indication: ATRIAL FIBRILLATION
     Dosage: DOSE WAS 2.5 (UNIT UNSPECIFIED)
     Route: 048
     Dates: start: 2013
  5. CRESTOR [Concomitant]
     Indication: BLOOD CHOLESTEROL INCREASED
     Route: 048
     Dates: start: 2012
  6. SYNTHROID [Concomitant]
     Indication: THYROID DISORDER
     Route: 048
  7. SOTALOL [Concomitant]
     Indication: HYPERTENSION
     Dosage: DOSE WAS 160 (UNIT UNSPECIFIED)
     Route: 048
     Dates: start: 2011
  8. SOTALOL [Concomitant]
     Indication: ATRIAL FIBRILLATION
     Dosage: DOSE WAS 160 (UNIT UNSPECIFIED)
     Route: 048
     Dates: start: 2011
  9. VITAMINS (NOS) [Concomitant]
     Route: 065
  10. FISH OIL [Concomitant]
     Route: 065

REACTIONS (1)
  - Cholelithiasis [Not Recovered/Not Resolved]
